FAERS Safety Report 6140607-7 (Version None)
Quarter: 2009Q1

REPORT INFORMATION
  Report Type: 
  Country: None (occurrence: None)
  Receive Date: 20090331
  Receipt Date: 20081007
  Transmission Date: 20090719
  Serious: Yes (Other)
  Sender: FDA-Public Use
  Company Number: 2009EU001042

PATIENT

DRUGS (3)
  1. TACROLIMUS [Suspect]
     Dosage: 0.5 MG, UNKNOWN/D, UNKNOWN
  2. FOSAMPRENAVIR(FOSAMPRENAVIR) FORMULATION UNKNOWN [Suspect]
     Dosage: 1400 MG, BID, UNKNOWN
  3. NELFINAVIR (NELFINAVIR) FORMULATION UNKNOWN [Concomitant]

REACTIONS (1)
  - DRUG INTERACTION [None]
